FAERS Safety Report 9224629 (Version 1)
Quarter: 2013Q2

REPORT INFORMATION
  Report Type: Spontaneous
  Country: JP (occurrence: JP)
  Receive Date: 20130411
  Receipt Date: 20130411
  Transmission Date: 20140414
  Serious: Yes (Other)
  Sender: FDA-Public Use
  Company Number: JP-UCBSA-077972

PATIENT
  Age: 31 Year
  Sex: Male

DRUGS (4)
  1. XYZAL [Suspect]
     Indication: DERMATITIS ATOPIC
     Route: 048
     Dates: start: 20121120, end: 20130108
  2. ALESION [Concomitant]
     Indication: DERMATITIS ATOPIC
     Dates: end: 20121120
  3. ALESION [Concomitant]
     Indication: DERMATITIS ATOPIC
     Dates: start: 20130108
  4. PROTOPIC [Concomitant]
     Route: 061
     Dates: start: 1992

REACTIONS (6)
  - Mucous membrane disorder [Recovered/Resolved]
  - Nasal discomfort [Recovered/Resolved]
  - Eye pruritus [Recovered/Resolved]
  - Eyelids pruritus [Unknown]
  - Ocular hyperaemia [Unknown]
  - Conjunctival haemorrhage [Unknown]
